FAERS Safety Report 18353427 (Version 1)
Quarter: 2020Q4

REPORT INFORMATION
  Report Type: Spontaneous
  Country: US (occurrence: US)
  Receive Date: 20201006
  Receipt Date: 20201006
  Transmission Date: 20210114
  Serious: No
  Sender: FDA-Public Use
  Company Number: US-ALLERGAN-2032282US

PATIENT

DRUGS (1)
  1. LINZESS [Suspect]
     Active Substance: LINACLOTIDE
     Indication: PRODUCT USED FOR UNKNOWN INDICATION
     Dosage: UNK, QD
     Dates: start: 2014

REACTIONS (3)
  - Peripheral venous disease [Not Recovered/Not Resolved]
  - Fungal infection [Unknown]
  - Constipation [Not Recovered/Not Resolved]
